FAERS Safety Report 8761407 (Version 4)
Quarter: 2013Q1

REPORT INFORMATION
  Report Type: Report from Study
  Country: CA (occurrence: CA)
  Receive Date: 20120830
  Receipt Date: 20130117
  Transmission Date: 20140127
  Serious: Yes (Hospitalization)
  Sender: FDA-Public Use
  Company Number: CA-PFIZER INC-2012207172

PATIENT
  Age: 66 Year
  Sex: Female
  Weight: 83.3 kg

DRUGS (16)
  1. EFFEXOR XR [Suspect]
     Indication: MAJOR DEPRESSION
     Dosage: 37.5 MG, 1X/DAY
     Route: 048
     Dates: start: 20120314, end: 20120316
  2. EFFEXOR XR [Suspect]
     Dosage: 75 MG, 1X/DAY
     Route: 048
     Dates: start: 20120317, end: 20120319
  3. EFFEXOR XR [Suspect]
     Dosage: 112.5 MG, 1X/DAY
     Route: 048
     Dates: start: 20120320, end: 20120322
  4. EFFEXOR XR [Suspect]
     Dosage: 150 MG, 1X/DAY
     Route: 048
     Dates: start: 20120323, end: 20120427
  5. EFFEXOR XR [Suspect]
     Dosage: 187.5 MG, 1X/DAY
     Route: 048
     Dates: start: 20120428, end: 20120430
  6. EFFEXOR XR [Suspect]
     Dosage: 225 MG, 1X/DAY
     Route: 048
     Dates: start: 20120501, end: 20120503
  7. EFFEXOR XR [Suspect]
     Dosage: 262.5 MG, 1X/DAY
     Route: 048
     Dates: start: 20120504, end: 20120506
  8. EFFEXOR XR [Suspect]
     Dosage: 300 MG, 1X/DAY
     Route: 048
     Dates: start: 20120507
  9. BLINDED THERAPY [Suspect]
     Indication: MAJOR DEPRESSION
     Dosage: 1X/DAY
     Route: 048
     Dates: start: 20120605, end: 20120611
  10. BLINDED THERAPY [Suspect]
     Dosage: 1X/DAY
     Route: 048
     Dates: start: 20120612
  11. ELTROXIN [Concomitant]
     Dosage: 0.1 MG, 1X/DAY
     Dates: start: 2004
  12. ATORVASTATIN [Concomitant]
     Dosage: 10 MG, 1X/DAY
     Dates: start: 2005, end: 20120718
  13. ESOMEPRAZOLE [Concomitant]
     Dosage: 40 MG, 1X/DAY
     Dates: start: 2008
  14. ZOPICLONE [Concomitant]
     Dosage: 7.5 MG, 1X/DAY AT BEDTIME
     Dates: start: 20120320
  15. METFORMIN [Concomitant]
     Dosage: 1000 MG, 2X/DAY
     Dates: start: 20120323
  16. NICOTINE [Concomitant]
     Dosage: UNK

REACTIONS (1)
  - Non-cardiac chest pain [Recovered/Resolved]
